FAERS Safety Report 7988177-2 (Version None)
Quarter: 2011Q4

REPORT INFORMATION
  Report Type: 
  Country: None (occurrence: None)
  Receive Date: 20111216
  Receipt Date: 20101210
  Transmission Date: 20120403
  Serious: No
  Sender: FDA-Public Use
  Company Number: US-BRISTOL-MYERS SQUIBB COMPANY-15436793

PATIENT
  Age: 67 Year
  Sex: Female

DRUGS (2)
  1. ABILIFY [Suspect]
     Dates: end: 20100101
  2. REMERON [Concomitant]
     Indication: SLEEP DISORDER

REACTIONS (2)
  - NAIL DISORDER [None]
  - ALOPECIA [None]
